FAERS Safety Report 6139934-9 (Version None)
Quarter: 2009Q2

REPORT INFORMATION
  Report Type: 
  Country: None (occurrence: None)
  Receive Date: 20090401
  Receipt Date: 20090330
  Transmission Date: 20091009
  Serious: Yes (Hospitalization)
  Sender: FDA-Public Use
  Company Number: US-ELI_LILLY_AND_COMPANY-US200903007730

PATIENT
  Sex: Male

DRUGS (2)
  1. BYETTA [Suspect]
     Dosage: 5 UG, 2/D
     Dates: start: 20081117, end: 20090120
  2. BYETTA [Suspect]
     Dosage: 10 UG, 2/D
     Dates: start: 20090120, end: 20090301

REACTIONS (1)
  - PANCREATITIS [None]
